FAERS Safety Report 18676016 (Version 1)
Quarter: 2020Q4

REPORT INFORMATION
  Report Type: Spontaneous
  Country: JP (occurrence: JP)
  Receive Date: 20201229
  Receipt Date: 20201229
  Transmission Date: 20210114
  Serious: Yes (Hospitalization)
  Sender: FDA-Public Use
  Company Number: JP-NODEN PHARMA DAC-NOD-2020-000107

PATIENT
  Age: 85 Year
  Sex: Female

DRUGS (7)
  1. EPLERENONE. [Concomitant]
     Active Substance: EPLERENONE
     Indication: HYPERTENSION
     Dosage: 50 MILLIGRAM, QD
     Route: 065
  2. RASILEZ [Suspect]
     Active Substance: ALISKIREN
     Indication: RENOVASCULAR HYPERTENSION
     Dosage: 150 MILLIGRAM, QD
     Route: 048
  3. CALCIUM CHANNEL BLOCKERS [Concomitant]
     Active Substance: UNSPECIFIED INGREDIENT
     Indication: RENOVASCULAR HYPERTENSION
     Dosage: UNK
     Route: 048
  4. RASILEZ [Suspect]
     Active Substance: ALISKIREN
     Dosage: 150 MILLIGRAM, QD , EVERY 3 DAYS
     Route: 048
     Dates: start: 20190824, end: 20190827
  5. ALISKIREN [Suspect]
     Active Substance: ALISKIREN
     Indication: HYPERTENSION
     Dosage: 150 MILLIGRAM, QD
     Route: 065
  6. TOLVAPTAN [Concomitant]
     Active Substance: TOLVAPTAN
     Indication: OEDEMA
     Dosage: 0.5 DOSAGE FORM, QD
     Route: 048
     Dates: start: 20190803
  7. SPIRONOLACTONE. [Concomitant]
     Active Substance: SPIRONOLACTONE
     Indication: HYPOKALAEMIA
     Dosage: 1 DOSAGE FORM, QD
     Route: 048
     Dates: start: 20190828

REACTIONS (2)
  - Oedema peripheral [Recovered/Resolved]
  - Urine output decreased [Recovered/Resolved]

NARRATIVE: CASE EVENT DATE: 20190825
